FAERS Safety Report 5333319-0 (Version None)
Quarter: 2007Q2

REPORT INFORMATION
  Report Type: 
  Country: None (occurrence: None)
  Receive Date: 20070524
  Receipt Date: 20070522
  Transmission Date: 20071010
  Serious: Yes (Hospitalization)
  Sender: FDA-Public Use
  Company Number: HQWYE307022MAY07

PATIENT
  Sex: Male

DRUGS (10)
  1. CORDARONE [Suspect]
     Indication: VENTRICULAR TACHYCARDIA
     Route: 048
     Dates: start: 20051001
  2. CORDARONE [Suspect]
     Route: 048
     Dates: end: 20070303
  3. ZOLOFT [Concomitant]
     Dosage: 50 MG; FREQUENCY NOT SPECIFIED
     Route: 048
  4. SIMVASTATIN [Concomitant]
  5. METOPROLOL SUCCINATE [Concomitant]
  6. NITROMEX [Concomitant]
  7. IMDUR [Concomitant]
  8. IMOVANE [Concomitant]
  9. NEXIUM [Concomitant]
  10. WARAN [Concomitant]

REACTIONS (5)
  - ATRIAL FIBRILLATION [None]
  - ATRIAL FLUTTER [None]
  - HYPERTHYROIDISM [None]
  - OEDEMA PERIPHERAL [None]
  - THYROIDITIS [None]
